FAERS Safety Report 8311288-9 (Version None)
Quarter: 2012Q2

REPORT INFORMATION
  Report Type: 
  Country: None (occurrence: None)
  Receive Date: 20120425
  Receipt Date: 20120419
  Transmission Date: 20120825
  Serious: Yes (Hospitalization)
  Sender: FDA-Public Use
  Company Number: US-GLAXOSMITHKLINE-A0938899A

PATIENT
  Age: 57 Year
  Sex: Male

DRUGS (4)
  1. METFORMIN HCL [Concomitant]
  2. AVANDAMET [Suspect]
     Indication: DIABETES MELLITUS
     Route: 048
     Dates: start: 20050801, end: 20060514
  3. AVANDIA [Suspect]
     Indication: DIABETES MELLITUS
     Dosage: 4MG TWICE PER DAY
     Route: 048
     Dates: start: 20080915, end: 20090113
  4. GLUCOTROL [Concomitant]

REACTIONS (4)
  - SILENT MYOCARDIAL INFARCTION [None]
  - CARDIOMYOPATHY [None]
  - HEART INJURY [None]
  - CARDIAC FAILURE CONGESTIVE [None]
